FAERS Safety Report 4534792-8 (Version None)
Quarter: 2004Q4

REPORT INFORMATION
  Report Type: 
  Country: None (occurrence: None)
  Receive Date: 20041222
  Receipt Date: 20040310
  Transmission Date: 20050328
  Serious: No
  Sender: FDA-Public Use
  Company Number: US-BRISTOL-MYERS SQUIBB COMPANY-12530093

PATIENT
  Age: 65 Year
  Sex: Male
  Weight: 68 kg

DRUGS (5)
  1. PRAVACHOL [Suspect]
     Indication: BLOOD CHOLESTEROL INCREASED
     Route: 048
  2. COUMADIN [Concomitant]
     Route: 048
  3. BETAPACE [Concomitant]
     Route: 048
  4. LOPRESSOR [Concomitant]
     Route: 048
  5. CARDIZEM [Concomitant]
     Route: 048

REACTIONS (1)
  - HYPOAESTHESIA [None]
